FAERS Safety Report 13348742 (Version 1)
Quarter: 2017Q1

REPORT INFORMATION
  Report Type: Report from Study
  Country: None (occurrence: US)
  Receive Date: 20170320
  Receipt Date: 20170320
  Transmission Date: 20170428
  Serious: Yes (Hospitalization)
  Sender: FDA-Public Use
  Company Number: US-ABBVIE-17K-163-1889424-00

PATIENT
  Sex: Female

DRUGS (1)
  1. HUMIRA [Suspect]
     Active Substance: ADALIMUMAB
     Indication: PSORIASIS
     Route: 058
     Dates: start: 20161125

REACTIONS (6)
  - Pruritus [Unknown]
  - Asthma [Not Recovered/Not Resolved]
  - General physical condition abnormal [Unknown]
  - Quality of life decreased [Unknown]
  - Emotional distress [Unknown]
  - Chronic obstructive pulmonary disease [Unknown]
